FAERS Safety Report 14718699 (Version 3)
Quarter: 2018Q2

REPORT INFORMATION
  Report Type: Spontaneous
  Country: US (occurrence: US)
  Receive Date: 20180405
  Receipt Date: 20180426
  Transmission Date: 20180711
  Serious: Yes (Hospitalization)
  Sender: FDA-Public Use
  Company Number: US-UNITED THERAPEUTICS-UNT-2018-002639

PATIENT
  Age: 2 Year
  Sex: Male
  Weight: 14.97 kg

DRUGS (5)
  1. LETAIRIS [Concomitant]
     Active Substance: AMBRISENTAN
     Indication: PRODUCT USED FOR UNKNOWN INDICATION
     Route: 065
  2. REVATIO [Concomitant]
     Active Substance: SILDENAFIL CITRATE
     Indication: PRODUCT USED FOR UNKNOWN INDICATION
     Route: 065
  3. EPOPROSTENOL TEVA [Concomitant]
     Indication: PRODUCT USED FOR UNKNOWN INDICATION
     Route: 065
  4. REMODULIN [Suspect]
     Active Substance: TREPROSTINIL
     Indication: PULMONARY ARTERIAL HYPERTENSION
     Dosage: 0.042 ?G/KG, CONTINUING
     Route: 041
     Dates: start: 20180220
  5. REMODULIN [Suspect]
     Active Substance: TREPROSTINIL
     Dosage: 0.044 ?G/KG, CONTINUING
     Route: 041

REACTIONS (12)
  - Gait disturbance [Unknown]
  - Pyrexia [Unknown]
  - Flushing [Unknown]
  - Insomnia [Unknown]
  - Blood pressure decreased [Unknown]
  - Erythema [Unknown]
  - Lethargy [Unknown]
  - Arthralgia [Unknown]
  - Dermatitis contact [Unknown]
  - Rash papular [Unknown]
  - Neuropathy peripheral [Recovering/Resolving]
  - Catheter site inflammation [Not Recovered/Not Resolved]

NARRATIVE: CASE EVENT DATE: 201802
